FAERS Safety Report 7032772-4 (Version None)
Quarter: 2010Q4

REPORT INFORMATION
  Report Type: 
  Country: None (occurrence: None)
  Receive Date: 20101007
  Receipt Date: 20101001
  Transmission Date: 20110411
  Serious: No
  Sender: FDA-Public Use
  Company Number: US-PFIZER INC-2010125614

PATIENT
  Sex: Female
  Weight: 79.365 kg

DRUGS (13)
  1. CHANTIX [Suspect]
     Indication: SMOKING CESSATION THERAPY
     Dosage: 1 MG, 2X/DAY
     Route: 048
     Dates: start: 20100927, end: 20100927
  2. PLAVIX [Concomitant]
     Dosage: UNK
  3. BISOPROLOL [Concomitant]
     Dosage: UNK
  4. ACETYLSALICYLIC ACID [Concomitant]
     Dosage: 325 MG, UNK
  5. ISOSORBIDE [Concomitant]
     Dosage: UNK
  6. ESTRADIOL [Concomitant]
     Dosage: UNK
  7. OXYCONTIN [Concomitant]
     Dosage: UNK
  8. FENTANYL [Concomitant]
     Dosage: UNK
  9. KLONOPIN [Concomitant]
     Dosage: UNK
  10. TIZANIDINE [Concomitant]
     Dosage: UNK
  11. TRAZODONE [Concomitant]
     Dosage: UNK
  12. AMBIEN [Concomitant]
     Dosage: UNK
  13. ADVAIR DISKUS 100/50 [Concomitant]
     Dosage: UNK

REACTIONS (6)
  - DIZZINESS [None]
  - DRUG DISPENSING ERROR [None]
  - FEELING ABNORMAL [None]
  - INCORRECT DOSE ADMINISTERED [None]
  - MALAISE [None]
  - VIRAL INFECTION [None]
